FAERS Safety Report 17072983 (Version 1)
Quarter: 2019Q4

REPORT INFORMATION
  Report Type: Spontaneous
  Country: US (occurrence: US)
  Receive Date: 20191125
  Receipt Date: 20191125
  Transmission Date: 20200122
  Serious: No
  Sender: FDA-Public Use
  Company Number: US-009507513-1911USA008042

PATIENT
  Sex: Male

DRUGS (2)
  1. FLONASE [Suspect]
     Active Substance: FLUTICASONE PROPIONATE
     Indication: NASAL POLYPS
     Dosage: TWICE A DAY
     Dates: start: 2014, end: 201905
  2. NASONEX [Suspect]
     Active Substance: MOMETASONE FUROATE
     Indication: NASAL POLYPS
     Dosage: UNK

REACTIONS (2)
  - Drug ineffective [Unknown]
  - No adverse event [Unknown]
